FAERS Safety Report 13425203 (Version 2)
Quarter: 2017Q2

REPORT INFORMATION
  Report Type: Spontaneous
  Country: US (occurrence: US)
  Receive Date: 20170411
  Receipt Date: 20170421
  Transmission Date: 20170830
  Serious: Yes (Other)
  Sender: FDA-Public Use
  Company Number: US-BEH-2017079455

PATIENT
  Sex: Female
  Weight: 122.45 kg

DRUGS (26)
  1. EPIPEN [Concomitant]
     Active Substance: EPINEPHRINE
  2. CALTRATE D                         /00944201/ [Concomitant]
  3. HIZENTRA [Suspect]
     Active Substance: HUMAN IMMUNOGLOBULIN G
     Dosage: UNK
     Route: 058
  4. FLONASE [Concomitant]
     Active Substance: FLUTICASONE PROPIONATE
  5. TRIAMCINOLONE ACETONIDE. [Concomitant]
     Active Substance: TRIAMCINOLONE ACETONIDE
  6. VITAMIN B12 + FOLIC ACID [Concomitant]
  7. LEVOTHYROXINE. [Concomitant]
     Active Substance: LEVOTHYROXINE
  8. DILTIAZEM. [Concomitant]
     Active Substance: DILTIAZEM
  9. HIZENTRA [Suspect]
     Active Substance: HUMAN IMMUNOGLOBULIN G
     Indication: IMMUNODEFICIENCY COMMON VARIABLE
     Dosage: 12 G, UNK
     Route: 058
     Dates: start: 20150701
  10. IVERMECTIN. [Concomitant]
     Active Substance: IVERMECTIN
  11. OXYBUTYNIN [Concomitant]
     Active Substance: OXYBUTYNIN
  12. LIDOCAINE. [Concomitant]
     Active Substance: LIDOCAINE
     Dosage: 4 %, UNK
     Route: 065
  13. VITAMINS WITH MINERALS [Concomitant]
     Active Substance: MINERALS\VITAMINS
  14. GLUCOSAMINE [Concomitant]
     Active Substance: GLUCOSAMINE
  15. ACIDOPHILUS/PECTIN [Concomitant]
  16. TRETINOIN. [Concomitant]
     Active Substance: TRETINOIN
  17. FLUOROPLEX [Concomitant]
     Active Substance: FLUOROURACIL
  18. TIKOSYN [Concomitant]
     Active Substance: DOFETILIDE
  19. COMBIVENT RESPIMAT [Concomitant]
     Active Substance: ALBUTEROL SULFATE\IPRATROPIUM BROMIDE
  20. ACETAMINOPHEN. [Concomitant]
     Active Substance: ACETAMINOPHEN
  21. CRESTOR [Concomitant]
     Active Substance: ROSUVASTATIN CALCIUM
  22. ALLEGRA [Concomitant]
     Active Substance: FEXOFENADINE HYDROCHLORIDE
  23. LASIX [Concomitant]
     Active Substance: FUROSEMIDE
  24. DIPHENHYDRAMINE. [Concomitant]
     Active Substance: DIPHENHYDRAMINE
  25. AZELASTINE [Concomitant]
     Active Substance: AZELASTINE
  26. XARELTO [Concomitant]
     Active Substance: RIVAROXABAN

REACTIONS (2)
  - Basal cell carcinoma [Unknown]
  - Skin neoplasm excision [Unknown]
